FAERS Safety Report 7952169-X (Version None)
Quarter: 2011Q4

REPORT INFORMATION
  Report Type: 
  Country: None (occurrence: None)
  Receive Date: 20111201
  Receipt Date: 20111121
  Transmission Date: 20120403
  Serious: Yes (Other)
  Sender: FDA-Public Use
  Company Number: PHEH2011US08337

PATIENT
  Sex: Male

DRUGS (9)
  1. GANATON [Concomitant]
     Dosage: 50 MG, PER DAY
  2. FISH OIL [Concomitant]
     Dosage: PER DAY
  3. PROTONIX [Concomitant]
     Dosage: 14 MG, PER DAY
  4. AFINITOR [Suspect]
     Dosage: 10 MG PER DAY
     Dates: start: 20110909
  5. ENOXAPARIN SODIUM [Concomitant]
     Dosage: 135 MG, PER DAY
  6. SENOKOT [Concomitant]
     Indication: CONSTIPATION
  7. LASIX [Concomitant]
     Dosage: 20 MG PER DAY
  8. OXYCONTIN [Concomitant]
     Indication: PAIN
     Dosage: 20 MG, BID
  9. SIMETHICONE [Concomitant]
     Indication: FLATULENCE
     Dosage: 18 MG, EVERY 8 HRS

REACTIONS (3)
  - DRUG INEFFECTIVE [None]
  - BRAIN MASS [None]
  - CONVULSION [None]
